FAERS Safety Report 10223927 (Version 2)
Quarter: 2014Q2

REPORT INFORMATION
  Report Type: Spontaneous
  Country: US (occurrence: US)
  Receive Date: 20140609
  Receipt Date: 20140609
  Transmission Date: 20141212
  Serious: No
  Sender: FDA-Public Use
  Company Number: US-DRREDDYS-USA/USA/14/0039228

PATIENT
  Age: 76 Year
  Sex: Male
  Weight: 70.31 kg

DRUGS (4)
  1. FEXOFENADINE HCL  OTC [Suspect]
     Indication: RHINORRHOEA
     Route: 048
     Dates: start: 20140323
  2. FEXOFENADINE HCL  OTC [Suspect]
     Indication: NASAL DISCOMFORT
  3. FEXOFENADINE HCL  OTC [Suspect]
     Indication: OROPHARYNGEAL PAIN
  4. PANTOPRAZOLE SODIUM DR TABLETS 20MG + 40MG [Concomitant]
     Indication: PRODUCT USED FOR UNKNOWN INDICATION
     Route: 065

REACTIONS (2)
  - Drug ineffective [Unknown]
  - Product quality issue [Unknown]
